FAERS Safety Report 15354895 (Version 1)
Quarter: 2018Q3

REPORT INFORMATION
  Report Type: Spontaneous
  Country: US (occurrence: US)
  Receive Date: 20180906
  Receipt Date: 20180906
  Transmission Date: 20181010
  Serious: No
  Sender: FDA-Public Use
  Company Number: US-009507513-1808USA003704

PATIENT
  Age: 38 Year
  Sex: Female

DRUGS (2)
  1. DIPROLENE [Suspect]
     Active Substance: BETAMETHASONE DIPROPIONATE
     Indication: MATERNAL THERAPY TO ENHANCE FOETAL LUNG MATURITY
     Dosage: UNK
  2. DEXAMETHASONE. [Suspect]
     Active Substance: DEXAMETHASONE
     Indication: RESPIRATORY TRACT OEDEMA
     Dosage: 8 MG, UNK
     Route: 042

REACTIONS (1)
  - Maternal exposure during pregnancy [Unknown]
